FAERS Safety Report 5508549-5 (Version None)
Quarter: 2007Q4

REPORT INFORMATION
  Report Type: 
  Country: None (occurrence: None)
  Receive Date: 20071105
  Receipt Date: 20071021
  Transmission Date: 20080405
  Serious: Yes (Death, Hospitalization)
  Sender: FDA-Public Use
  Company Number: CERZ-11950

PATIENT
  Age: 7 Year
  Sex: Female

DRUGS (4)
  1. CEREZYME [Suspect]
     Indication: GAUCHER'S DISEASE
     Dates: start: 20010424, end: 20070925
  2. LOPRAMIDE [Concomitant]
  3. RIVATRIL [Concomitant]
  4. DISODIUM VALPROATE [Concomitant]

REACTIONS (5)
  - GENERAL PHYSICAL HEALTH DETERIORATION [None]
  - MYOCLONIC EPILEPSY [None]
  - NO THERAPEUTIC RESPONSE [None]
  - PNEUMONIA [None]
  - STATUS EPILEPTICUS [None]
